FAERS Safety Report 17903654 (Version 2)
Quarter: 2020Q4

REPORT INFORMATION
  Report Type: Report from Study
  Country: HU (occurrence: HU)
  Receive Date: 20200616
  Receipt Date: 20201007
  Transmission Date: 20210113
  Serious: Yes (Other)
  Sender: FDA-Public Use
  Company Number: NVSC2020HU018315

PATIENT
  Age: 50 Year

DRUGS (1)
  1. KISQALI [Suspect]
     Active Substance: RIBOCICLIB
     Indication: PRODUCT USED FOR UNKNOWN INDICATION
     Dosage: UNK
     Route: 065
     Dates: end: 20200904

REACTIONS (5)
  - Alopecia [Unknown]
  - Metastases to liver [Unknown]
  - Osteonecrosis of jaw [Unknown]
  - Tumour marker increased [Unknown]
  - Nausea [Unknown]

NARRATIVE: CASE EVENT DATE: 201809
